FAERS Safety Report 24197020 (Version 1)
Quarter: 2024Q3

REPORT INFORMATION
  Report Type: Spontaneous
  Country: CN (occurrence: CN)
  Receive Date: 20240810
  Receipt Date: 20240810
  Transmission Date: 20241017
  Serious: Yes (Death)
  Sender: BIOCON
  Company Number: CN-BIOCON BIOLOGICS LIMITED-BBL2024005737

PATIENT

DRUGS (1)
  1. INSULIN HUMAN [Suspect]
     Active Substance: INSULIN HUMAN
     Indication: Product used for unknown indication
     Dosage: 600 INTERNATIONAL UNIT
     Route: 058

REACTIONS (2)
  - Homicide [Fatal]
  - Overdose [Fatal]

NARRATIVE: CASE EVENT DATE: 20120101
